FAERS Safety Report 12105682 (Version 1)
Quarter: 2016Q1

REPORT INFORMATION
  Report Type: Spontaneous
  Country: US (occurrence: US)
  Receive Date: 20160223
  Receipt Date: 20160223
  Transmission Date: 20160526
  Serious: Yes (Hospitalization)
  Sender: FDA-Public Use
  Company Number: US-BECTON DICKINSON-2016BDN00034

PATIENT
  Age: 54 Year
  Sex: Female

DRUGS (2)
  1. UNSPECIFIED CONCOMITANT MEDICATION(S) [Concomitant]
  2. CHLORAPREP WITH TINT [Suspect]
     Active Substance: CHLORHEXIDINE GLUCONATE\ISOPROPYL ALCOHOL
     Indication: INFECTION PROPHYLAXIS
     Dosage: 1 DOSAGE UNITS, ONCE
     Route: 061
     Dates: start: 20151229, end: 20151229

REACTIONS (1)
  - Dermatitis [Recovered/Resolved]

NARRATIVE: CASE EVENT DATE: 20151231
